FAERS Safety Report 19253568 (Version 3)
Quarter: 2024Q1

REPORT INFORMATION
  Report Type: Spontaneous
  Country: US (occurrence: US)
  Receive Date: 20210513
  Receipt Date: 20240202
  Transmission Date: 20240410
  Serious: Yes (Other)
  Sender: FDA-Public Use
  Company Number: US-UCBSA-2020027571

PATIENT
  Age: 57 Year
  Sex: Female

DRUGS (3)
  1. CIMZIA [Suspect]
     Active Substance: CERTOLIZUMAB PEGOL
     Indication: Rheumatoid arthritis
     Dosage: 200 MILLIGRAM; OTHER FREQUENCY
     Route: 058
     Dates: start: 201812
  2. CIMZIA [Suspect]
     Active Substance: CERTOLIZUMAB PEGOL
     Dosage: 200 MILLIGRAM; OTHER FREQUENCY
     Route: 058
     Dates: start: 201905
  3. CIMZIA [Suspect]
     Active Substance: CERTOLIZUMAB PEGOL
     Dosage: 200 MILLIGRAM; OTHER FREQUENCY
     Route: 058
     Dates: start: 201907

REACTIONS (8)
  - Rheumatoid arthritis [Unknown]
  - Nasopharyngitis [Unknown]
  - Pain [Unknown]
  - Cough [Unknown]
  - Productive cough [Unknown]
  - Oropharyngeal pain [Unknown]
  - Product dose omission issue [Unknown]
  - Inappropriate schedule of product administration [Unknown]

NARRATIVE: CASE EVENT DATE: 20200707
